FAERS Safety Report 9834692 (Version 3)
Quarter: 2014Q2

REPORT INFORMATION
  Report Type: Spontaneous
  Country: JP (occurrence: JP)
  Receive Date: 20140122
  Receipt Date: 20140407
  Transmission Date: 20141212
  Serious: No
  Sender: FDA-Public Use
  Company Number: JP-BRISTOL-MYERS SQUIBB COMPANY-20038436

PATIENT
  Age: 37 Year
  Sex: Male

DRUGS (16)
  1. METGLUCO [Suspect]
     Indication: TYPE 2 DIABETES MELLITUS
     Dosage: INITIAL DOSE-500 MG INCRSED ON 16MAY12-MAY13,04DEC-10DEC2013 250MG 2TIMES/DAY.
     Dates: start: 20120514
  2. SITAGLIPTIN PHOSPHATE [Concomitant]
     Indication: TYPE 2 DIABETES MELLITUS
     Route: 048
  3. SITAGLIPTIN PHOSPHATE [Concomitant]
     Indication: TYPE 2 DIABETES MELLITUS
     Route: 048
  4. AMARYL [Concomitant]
     Indication: TYPE 2 DIABETES MELLITUS
     Route: 048
     Dates: end: 20131203
  5. BLOPRESS PLUS [Concomitant]
     Indication: HYPERTENSION
     Route: 048
  6. AMLODIPINE [Concomitant]
     Indication: HYPERTENSION
     Route: 048
     Dates: end: 20131219
  7. VOGLIBOSE [Concomitant]
     Indication: TYPE 2 DIABETES MELLITUS
     Route: 048
  8. LIVALO [Concomitant]
     Indication: DYSLIPIDAEMIA
     Route: 048
     Dates: end: 20131218
  9. PAROXETINE HCL [Concomitant]
     Indication: DEPRESSION
     Route: 048
  10. TRIAZOLAM [Concomitant]
     Indication: DEPRESSION
     Route: 048
  11. ETIZOLAM [Concomitant]
     Indication: DEPRESSION
     Route: 048
     Dates: end: 20131221
  12. BROTIZOLAM [Concomitant]
     Indication: DEPRESSION
     Route: 048
  13. LANTUS [Concomitant]
     Route: 058
     Dates: start: 20131128
  14. PITAVASTATIN CALCIUM [Concomitant]
     Indication: DYSLIPIDAEMIA
     Route: 048
     Dates: start: 20131219
  15. AMLODIPINE BESYLATE [Concomitant]
     Indication: HYPERTENSION
     Route: 048
     Dates: start: 20131220
  16. DEPAS [Concomitant]
     Indication: DEPRESSION
     Route: 048
     Dates: start: 20131222

REACTIONS (3)
  - Aspartate aminotransferase increased [Recovering/Resolving]
  - Alanine aminotransferase increased [Recovering/Resolving]
  - Hepatic function abnormal [Recovering/Resolving]
